FAERS Safety Report 19786039 (Version 1)
Quarter: 2021Q3

REPORT INFORMATION
  Report Type: Spontaneous
  Country: US (occurrence: US)
  Receive Date: 20210903
  Receipt Date: 20210903
  Transmission Date: 20211014
  Serious: Yes (Other)
  Sender: FDA-Public Use
  Company Number: US-AMGEN-USASP2021132488

PATIENT
  Age: 63 Year
  Sex: Female
  Weight: 45.35 kg

DRUGS (1)
  1. PROLIA [Suspect]
     Active Substance: DENOSUMAB
     Indication: OSTEOPOROSIS POSTMENOPAUSAL
     Dosage: UNK UNK, Q6MO
     Route: 065
     Dates: start: 202101

REACTIONS (5)
  - Groin pain [Unknown]
  - Lower limb fracture [Unknown]
  - Pathological fracture [Unknown]
  - Pain in jaw [Unknown]
  - Alopecia [Unknown]

NARRATIVE: CASE EVENT DATE: 2021
